FAERS Safety Report 9058949 (Version 1)
Quarter: 2013Q1

REPORT INFORMATION
  Report Type: Spontaneous
  Country: US (occurrence: US)
  Receive Date: 20130211
  Receipt Date: 20130211
  Transmission Date: 20140127
  Serious: No
  Sender: FDA-Public Use
  Company Number: US-BRISTOL-MYERS SQUIBB COMPANY-16432361

PATIENT
  Age: 76 Year
  Sex: Female

DRUGS (10)
  1. METFORMIN HCL [Suspect]
  2. PLAVIX [Suspect]
     Indication: MYOCARDIAL INFARCTION
     Dates: start: 2001, end: 20120123
  3. PLAVIX [Suspect]
     Indication: STENT PLACEMENT
     Dates: start: 2001, end: 20120123
  4. RAMIPRIL [Suspect]
  5. FUROSEMIDE [Suspect]
  6. SIMVASTATIN [Suspect]
  7. LEXAPRO [Suspect]
  8. FOLIC ACID [Suspect]
  9. AMLODIPINE [Suspect]
  10. METOPROLOL SUCCINATE [Suspect]

REACTIONS (1)
  - Drug eruption [Unknown]
